FAERS Safety Report 24382973 (Version 3)
Quarter: 2025Q1

REPORT INFORMATION
  Report Type: Other
  Country: US (occurrence: US)
  Receive Date: 20241001
  Receipt Date: 20250213
  Transmission Date: 20250408
  Serious: No
  Sender: TRAVERE THERAPEUTICS
  Company Number: US-TRAVERE-2024TVT00964

PATIENT
  Age: 60 Year
  Sex: Male

DRUGS (1)
  1. FILSPARI [Suspect]
     Active Substance: SPARSENTAN
     Indication: Product used for unknown indication
     Route: 048

REACTIONS (6)
  - Vomiting [None]
  - Diarrhoea [None]
  - Joint stiffness [None]
  - Weight increased [None]
  - Peripheral swelling [None]
  - Fluid retention [Unknown]

NARRATIVE: CASE EVENT DATE: 20250203
